FAERS Safety Report 11110236 (Version 1)
Quarter: 2015Q2

REPORT INFORMATION
  Report Type: Spontaneous
  Country: GB (occurrence: GB)
  Receive Date: 20150513
  Receipt Date: 20150513
  Transmission Date: 20150821
  Serious: Yes (Other)
  Sender: FDA-Public Use
  Company Number: GB-GLAXOSMITHKLINE-GB2015063851

PATIENT
  Age: 62 Year
  Sex: Female
  Weight: 88.9 kg

DRUGS (3)
  1. SEREVENT DISKUS [Concomitant]
     Active Substance: SALMETEROL XINAFOATE
  2. VENTOLIN [Concomitant]
     Active Substance: ALBUTEROL SULFATE
  3. RELVAR ELLIPTA [Suspect]
     Active Substance: FLUTICASONE FUROATE\VILANTEROL TRIFENATATE
     Indication: CHRONIC OBSTRUCTIVE PULMONARY DISEASE
     Dosage: 1 DF, QD
     Route: 055
     Dates: start: 20150312, end: 20150321

REACTIONS (3)
  - Gait disturbance [Unknown]
  - Swelling [Unknown]
  - Hypersensitivity [Not Recovered/Not Resolved]

NARRATIVE: CASE EVENT DATE: 20150317
